FAERS Safety Report 14624544 (Version 1)
Quarter: 2018Q1

REPORT INFORMATION
  Report Type: Spontaneous
  Country: US (occurrence: US)
  Receive Date: 20180310
  Receipt Date: 20180310
  Transmission Date: 20180509
  Serious: Yes (Other)
  Sender: FDA-Public Use
  Company Number: None

PATIENT
  Age: 46 Year
  Sex: Female

DRUGS (23)
  1. MORPHINE [Concomitant]
     Active Substance: MORPHINE
  2. LIDOCAINE. [Concomitant]
     Active Substance: LIDOCAINE
  3. FLUTICASONE. [Concomitant]
     Active Substance: FLUTICASONE
  4. ULTRAM [Concomitant]
     Active Substance: TRAMADOL HYDROCHLORIDE
  5. ESTRADIOL. [Concomitant]
     Active Substance: ESTRADIOL
  6. ZIPSOR [Concomitant]
     Active Substance: DICLOFENAC POTASSIUM
  7. TROKENDI [Concomitant]
     Active Substance: TOPIRAMATE
  8. HYDROCODONE [Concomitant]
     Active Substance: HYDROCODONE
  9. CIMZIA [Suspect]
     Active Substance: CERTOLIZUMAB PEGOL
     Indication: PSORIASIS
     Route: 058
     Dates: start: 201510
  10. TRIAZOLAM. [Concomitant]
     Active Substance: TRIAZOLAM
  11. CIPRO [Concomitant]
     Active Substance: CIPROFLOXACIN HYDROCHLORIDE
  12. AMOXICILLIN. [Concomitant]
     Active Substance: AMOXICILLIN
  13. AMOX/CLAV [Concomitant]
     Active Substance: AMOXICILLIN\CLAVULANATE POTASSIUM
  14. TRAMADOL. [Concomitant]
     Active Substance: TRAMADOL
  15. DOXYCYCLINE. [Concomitant]
     Active Substance: DOXYCYCLINE
  16. DICLOFENAC [Concomitant]
     Active Substance: DICLOFENAC
  17. CEFDINIR. [Concomitant]
     Active Substance: CEFDINIR
  18. SYMBICORT [Concomitant]
     Active Substance: BUDESONIDE\FORMOTEROL FUMARATE DIHYDRATE
  19. SULFASZINE [Concomitant]
  20. METOPROLOL. [Concomitant]
     Active Substance: METOPROLOL
  21. FLUCONAZOLE. [Concomitant]
     Active Substance: FLUCONAZOLE
  22. TOPAMAX [Concomitant]
     Active Substance: TOPIRAMATE
  23. PREDNISONE. [Concomitant]
     Active Substance: PREDNISONE

REACTIONS (1)
  - Therapy cessation [None]
